FAERS Safety Report 7171766-5 (Version None)
Quarter: 2010Q4

REPORT INFORMATION
  Report Type: 
  Country: None (occurrence: None)
  Receive Date: 20101217
  Receipt Date: 20100126
  Transmission Date: 20110411
  Serious: Yes (Hospitalization)
  Sender: FDA-Public Use
  Company Number: US-AMGEN-KDL388787

PATIENT

DRUGS (2)
  1. ENBREL [Suspect]
     Indication: RHEUMATOID ARTHRITIS
     Dosage: 25 MG, 2 TIMES/WK
     Route: 058
     Dates: start: 19991001
  2. METHOTREXATE [Concomitant]
     Dosage: 17.5 MG, QWK
     Route: 048

REACTIONS (6)
  - BUNION [None]
  - MYOCARDIAL INFARCTION [None]
  - NODULE ON EXTREMITY [None]
  - POST PROCEDURAL INFECTION [None]
  - TENDON DISORDER [None]
  - UPPER RESPIRATORY TRACT INFECTION [None]
